FAERS Safety Report 7672187-9 (Version None)
Quarter: 2011Q3

REPORT INFORMATION
  Report Type: 
  Country: None (occurrence: None)
  Receive Date: 20110809
  Receipt Date: 20110805
  Transmission Date: 20111222
  Serious: Yes (Death, Hospitalization, Other)
  Sender: FDA-Public Use
  Company Number: PHHY2011US64122

PATIENT
  Sex: Male

DRUGS (1)
  1. ZOMETA [Suspect]
     Indication: LYMPHOMA
     Dosage: 4 MG, PER 28 DAYS
     Dates: start: 20110127, end: 20110407

REACTIONS (7)
  - ODYNOPHAGIA [None]
  - DIABETES MELLITUS [None]
  - NEOPLASM MALIGNANT [None]
  - LUNG INFILTRATION [None]
  - FAILURE TO THRIVE [None]
  - NEOPLASM PROGRESSION [None]
  - PANCYTOPENIA [None]
